FAERS Safety Report 21418666 (Version 2)
Quarter: 2022Q4

REPORT INFORMATION
  Report Type: Spontaneous
  Country: CL (occurrence: CL)
  Receive Date: 20221006
  Receipt Date: 20221020
  Transmission Date: 20230112
  Serious: Yes (Other)
  Sender: FDA-Public Use
  Company Number: CL-PFIZER INC-PV202200075603

PATIENT
  Age: 72 Year
  Sex: Female

DRUGS (1)
  1. IBRANCE [Suspect]
     Active Substance: PALBOCICLIB
     Indication: Breast cancer metastatic
     Dosage: 75 MG, DAILY
     Route: 048
     Dates: start: 20190603, end: 20220920

REACTIONS (4)
  - Facial paralysis [Not Recovered/Not Resolved]
  - Off label use [Unknown]
  - Product administration interrupted [Unknown]
  - Dry skin [Unknown]

NARRATIVE: CASE EVENT DATE: 20190603
